FAERS Safety Report 9456906 (Version 1)
Quarter: 2013Q3

REPORT INFORMATION
  Report Type: Spontaneous
  Country: US (occurrence: US)
  Receive Date: 20130813
  Receipt Date: 20130813
  Transmission Date: 20140515
  Serious: Yes (Hospitalization)
  Sender: FDA-Public Use
  Company Number: US-TEVA-425538USA

PATIENT
  Sex: Female

DRUGS (1)
  1. NABUMETONE [Suspect]
     Dosage: TOOK 25 TABS, 1/DAY

REACTIONS (4)
  - Gastrointestinal haemorrhage [Recovered/Resolved]
  - Blood pressure decreased [Recovered/Resolved]
  - Malaise [Recovered/Resolved]
  - Decreased appetite [Recovered/Resolved]
